FAERS Safety Report 4557871-8 (Version None)
Quarter: 2005Q1

REPORT INFORMATION
  Report Type: 
  Country: None (occurrence: None)
  Receive Date: 20050121
  Receipt Date: 20021230
  Transmission Date: 20050727
  Serious: No
  Sender: FDA-Public Use
  Company Number: US-BRISTOL-MYERS SQUIBB COMPANY-12153268

PATIENT
  Sex: Male

DRUGS (4)
  1. SERZONE [Suspect]
     Indication: MAJOR DEPRESSION
     Route: 048
     Dates: start: 19970201, end: 19980301
  2. SERZONE [Suspect]
     Indication: ANXIETY
     Route: 048
     Dates: start: 19970201, end: 19980301
  3. PROZAC [Concomitant]
     Dates: start: 19900101, end: 19940101
  4. DEPAKOTE [Concomitant]
     Dates: start: 19900101, end: 20030101

REACTIONS (1)
  - LIVER FUNCTION TEST ABNORMAL [None]
